FAERS Safety Report 11094120 (Version 4)
Quarter: 2015Q2

REPORT INFORMATION
  Report Type: Spontaneous
  Country: IE (occurrence: IE)
  Receive Date: 20150506
  Receipt Date: 20150630
  Transmission Date: 20150821
  Serious: Yes (Death)
  Sender: FDA-Public Use
  Company Number: IE-BAYER-2015-037732

PATIENT
  Age: 50 Year
  Sex: Male

DRUGS (3)
  1. GADOVIST [Suspect]
     Active Substance: GADOBUTROL
     Dosage: UNK, UNK
     Dates: start: 20140806
  2. GADOVIST [Suspect]
     Active Substance: GADOBUTROL
     Dosage: UNK, UNK
     Dates: start: 20150116
  3. GADOVIST [Suspect]
     Active Substance: GADOBUTROL
     Dosage: UNK, ONCE
     Dates: start: 20150310, end: 20150310

REACTIONS (1)
  - Seizure [Fatal]

NARRATIVE: CASE EVENT DATE: 20150310
